FAERS Safety Report 5066077-8 (Version None)
Quarter: 2006Q3

REPORT INFORMATION
  Report Type: 
  Country: None (occurrence: None)
  Receive Date: 20060726
  Receipt Date: 20060712
  Transmission Date: 20061208
  Serious: Yes (Hospitalization)
  Sender: FDA-Public Use
  Company Number: CERZ-11280

PATIENT
  Age: 55 Year
  Sex: Male

DRUGS (1)
  1. CEREZYME [Suspect]
     Indication: GAUCHER'S DISEASE
     Dosage: 5600 UNITS Q2WKS IV
     Route: 042
     Dates: start: 20040408

REACTIONS (1)
  - GASTROINTESTINAL HAEMORRHAGE [None]
